FAERS Safety Report 5796964-4 (Version None)
Quarter: 2008Q3

REPORT INFORMATION
  Report Type: 
  Country: None (occurrence: None)
  Receive Date: 20080701
  Receipt Date: 20080618
  Transmission Date: 20090109
  Serious: Yes (Other)
  Sender: FDA-Public Use
  Company Number: US-WYE-H04603208

PATIENT
  Age: 29 Year
  Sex: Male
  Weight: 141.65 kg

DRUGS (2)
  1. ADVIL PM [Suspect]
     Indication: DRUG USE FOR UNKNOWN INDICATION
     Dosage: UP TO 15 DOSES PER DAY
     Route: 048
  2. EXTRA STRENGTH TYLENOL [Suspect]
     Indication: INTENTIONAL DRUG MISUSE
     Dosage: UP TO APPROXIMATELY 30 CAPLETS A DAY
     Route: 048
     Dates: start: 20080101

REACTIONS (2)
  - DRUG ABUSE [None]
  - INTENTIONAL OVERDOSE [None]
